FAERS Safety Report 5079263-8 (Version None)
Quarter: 2006Q3

REPORT INFORMATION
  Report Type: 
  Country: None (occurrence: None)
  Receive Date: 20060814
  Receipt Date: 20060801
  Transmission Date: 20061208
  Serious: Yes (Other)
  Sender: FDA-Public Use
  Company Number: PHHO2006US12321

PATIENT
  Age: 35 Year
  Sex: Male
  Weight: 89.342 kg

DRUGS (1)
  1. GLEEVEC [Suspect]
     Indication: KAPOSI'S SARCOMA
     Dosage: 400 MG, QD
     Route: 048
     Dates: start: 20060329, end: 20060726

REACTIONS (2)
  - BONE DISORDER [None]
  - PAIN IN EXTREMITY [None]
